FAERS Safety Report 9383967 (Version 1)
Quarter: 2013Q3

REPORT INFORMATION
  Report Type: Report from Study
  Country: CA (occurrence: CA)
  Receive Date: 20130705
  Receipt Date: 20130705
  Transmission Date: 20140515
  Serious: Yes (Other)
  Sender: FDA-Public Use
  Company Number: CA-ROCHE-1243981

PATIENT
  Sex: Female
  Weight: 90.9 kg

DRUGS (18)
  1. RITUXAN [Suspect]
     Indication: RHEUMATOID ARTHRITIS
     Dosage: DAY 1, DAY 15
     Route: 042
     Dates: start: 20100413, end: 20110125
  2. CELEBREX [Suspect]
     Indication: ANALGESIC THERAPY
     Route: 065
  3. DIPHENHYDRAMINE HCL [Concomitant]
     Indication: PREMEDICATION
     Route: 048
     Dates: start: 20100413, end: 20110125
  4. ACETAMINOPHEN [Concomitant]
     Indication: PREMEDICATION
     Route: 048
     Dates: start: 20100413, end: 20110125
  5. METHYLPREDNISOLONE [Concomitant]
     Indication: PREMEDICATION
     Route: 042
     Dates: start: 20100413, end: 20110125
  6. ACTONEL [Concomitant]
  7. AMITRIPTYLINE [Concomitant]
  8. DICLOFENAC [Concomitant]
  9. HYDROQUININE [Concomitant]
  10. PANTOLOC [Concomitant]
  11. PREDNISONE [Concomitant]
  12. MIRTAZAPINE [Concomitant]
  13. FOLIC ACID [Concomitant]
  14. LORAZEPAM [Concomitant]
  15. NITRAZEPAM [Concomitant]
  16. METHOTREXATE [Concomitant]
  17. LYRICA [Concomitant]
  18. MORPHINE [Concomitant]

REACTIONS (6)
  - Drug ineffective [Unknown]
  - Intervertebral disc disorder [Not Recovered/Not Resolved]
  - Back pain [Not Recovered/Not Resolved]
  - Nausea [Unknown]
  - Vomiting [Unknown]
  - Weight decreased [Unknown]
